FAERS Safety Report 7474287-5 (Version None)
Quarter: 2011Q2

REPORT INFORMATION
  Report Type: 
  Country: None (occurrence: None)
  Receive Date: 20110511
  Receipt Date: 20110325
  Transmission Date: 20111010
  Serious: Yes (Other)
  Sender: FDA-Public Use
  Company Number: PL-AMGEN-POLSP2011016308

PATIENT

DRUGS (2)
  1. ANTINEOPLASTIC AGENTS [Concomitant]
  2. NEULASTA [Suspect]
     Indication: CHEMOTHERAPY

REACTIONS (1)
  - CIRCULATORY COLLAPSE [None]
